FAERS Safety Report 9305372 (Version 2)
Quarter: 2013Q2

REPORT INFORMATION
  Report Type: Spontaneous
  Country: IT (occurrence: IT)
  Receive Date: 20130523
  Receipt Date: 20130611
  Transmission Date: 20140414
  Serious: Yes (Hospitalization)
  Sender: FDA-Public Use
  Company Number: IT-BRISTOL-MYERS SQUIBB COMPANY-18894980

PATIENT
  Age: 82 Year
  Sex: Female

DRUGS (7)
  1. COUMADIN TABS 5 MG [Suspect]
     Indication: ANTICOAGULANT THERAPY
     Dosage: 17JAN13
     Route: 048
     Dates: start: 20121201
  2. RABEPRAZOLE SODIUM [Concomitant]
  3. AMIODARONE CHLORHYDRATE [Concomitant]
  4. ACETYLCYSTEINE [Concomitant]
  5. RAMIPRIL [Concomitant]
  6. ALIFLUS DISKUS [Concomitant]
     Dosage: 25/250 MCS
     Route: 055
  7. NIFEREX [Concomitant]

REACTIONS (4)
  - Dyspnoea [Not Recovered/Not Resolved]
  - Asthenia [Not Recovered/Not Resolved]
  - Toxicity to various agents [Not Recovered/Not Resolved]
  - Cardiac failure [Unknown]
